FAERS Safety Report 10260378 (Version 1)
Quarter: 2014Q2

REPORT INFORMATION
  Report Type: Spontaneous
  Country: NL (occurrence: NL)
  Receive Date: 20140625
  Receipt Date: 20140625
  Transmission Date: 20141212
  Serious: Yes (Other)
  Sender: FDA-Public Use
  Company Number: NL-AMGEN INC.-NLDSP2010014556

PATIENT
  Age: 47 Year
  Sex: Male

DRUGS (1)
  1. NPLATE [Suspect]
     Indication: IMMUNE THROMBOCYTOPENIC PURPURA
     Dosage: 9 MUG/KG, QWK
     Route: 058
     Dates: start: 20091229, end: 20100510

REACTIONS (1)
  - Platelet count abnormal [Unknown]
